FAERS Safety Report 18169807 (Version 1)
Quarter: 2020Q3

REPORT INFORMATION
  Report Type: Spontaneous
  Country: CA (occurrence: CA)
  Receive Date: 20200819
  Receipt Date: 20200819
  Transmission Date: 20201103
  Serious: Yes (Life-Threatening)
  Sender: FDA-Public Use
  Company Number: CA-ACCORD-195823

PATIENT
  Age: 3 Year
  Sex: Male
  Weight: 12 kg

DRUGS (21)
  1. CALCIUM [Concomitant]
     Active Substance: CALCIUM
  2. MAGNESIUM [Concomitant]
     Active Substance: MAGNESIUM
  3. MINERALS NOS/VITAMINS NOS [Concomitant]
     Active Substance: MINERALS\VITAMINS
     Dosage: DOSAGE FORM: PIECE, CHEWABLE
  4. SODIUM PHOSPHATE/SODIUM PHOSPHATE MONOBASIC (AN [Concomitant]
  5. ETOPOSIDE. [Suspect]
     Active Substance: ETOPOSIDE
     Indication: NEUROBLASTOMA
     Route: 042
  6. PARACETAMOL [Concomitant]
     Active Substance: ACETAMINOPHEN
  7. LUGOL [Concomitant]
     Active Substance: IODINE\POTASSIUM IODIDE
  8. POTASSIUM [Concomitant]
     Active Substance: POTASSIUM
  9. DEXAMETHASONE. [Concomitant]
     Active Substance: DEXAMETHASONE
     Dosage: DOSAGE FORM: LIQUID INTRA? ARTICULAR
  10. DIPHENHYDRAMINE. [Concomitant]
     Active Substance: DIPHENHYDRAMINE
  11. MELATONIN [Concomitant]
     Active Substance: MELATONIN
  12. ONDANSETRON [Concomitant]
     Active Substance: ONDANSETRON
  13. EMEND [Concomitant]
     Active Substance: APREPITANT
  14. FILGRASTIM [Concomitant]
     Active Substance: FILGRASTIM
  15. MORPHINE [Concomitant]
     Active Substance: MORPHINE
  16. CISPLATIN. [Suspect]
     Active Substance: CISPLATIN
     Indication: NEUROBLASTOMA
     Dosage: CISPLATIN INJECTION
     Route: 042
  17. DIMENHYDRINATE. [Concomitant]
     Active Substance: DIMENHYDRINATE
     Dosage: DOSAGE FORM: LIQUID INTRAVENOUS
  18. COLECALCIFEROL [Concomitant]
     Active Substance: CHOLECALCIFEROL
  19. HEPARIN [Concomitant]
     Active Substance: HEPARIN SODIUM
  20. METOCLOPRAMIDE. [Concomitant]
     Active Substance: METOCLOPRAMIDE
  21. SULFAMETHOXAZOLE/TRIMETHOPRIM [Concomitant]
     Active Substance: SULFAMETHOXAZOLE\TRIMETHOPRIM

REACTIONS (8)
  - Neutropenia [Unknown]
  - Blood phosphorus abnormal [Unknown]
  - Hypokalaemia [Unknown]
  - Diarrhoea [Unknown]
  - Pancytopenia [Unknown]
  - Blood magnesium abnormal [Unknown]
  - Dehydration [Unknown]
  - Aplastic anaemia [Unknown]
